FAERS Safety Report 12683340 (Version 3)
Quarter: 2016Q3

REPORT INFORMATION
  Report Type: Spontaneous
  Country: US (occurrence: US)
  Receive Date: 20160825
  Receipt Date: 20160916
  Transmission Date: 20161109
  Serious: Yes (Other)
  Sender: FDA-Public Use
  Company Number: US-PFIZER INC-2016398055

PATIENT
  Age: 33 Year
  Sex: Female
  Weight: 58.6 kg

DRUGS (7)
  1. DILANTIN [Suspect]
     Active Substance: PHENYTOIN
     Indication: SEIZURE
     Dosage: 100 MG, UNK (100 MG CAPSULES AND 50 MG CHEWABLES (150MG IN THE MORNING AND 200 MG AT NIGHT) )
     Route: 048
     Dates: start: 1996
  2. SYNTHROID [Suspect]
     Active Substance: LEVOTHYROXINE SODIUM
     Indication: THYROIDECTOMY
     Dosage: 0.175 MG, DAILY
  3. DILANTIN [Suspect]
     Active Substance: PHENYTOIN
     Indication: SEIZURE
     Dosage: 50 MG, UNK (100 MG CAPSULES AND 50 MG CHEWABLES (150MG IN THE MORNING AND 200 MG AT NIGHT) )
     Route: 048
     Dates: start: 1996
  4. DILANTIN [Suspect]
     Active Substance: PHENYTOIN
     Indication: EPILEPSY
  5. VITAMIN D3 [Concomitant]
     Active Substance: CHOLECALCIFEROL
     Indication: VITAMIN D DECREASED
     Dosage: 1000 IU, 1X/DAY
     Dates: start: 2015
  6. DILANTIN [Suspect]
     Active Substance: PHENYTOIN
     Indication: EPILEPSY
  7. SYNTHROID [Suspect]
     Active Substance: LEVOTHYROXINE SODIUM
     Dosage: 0.2 MG, DAILY
     Dates: start: 20160511

REACTIONS (4)
  - Anticonvulsant drug level increased [Not Recovered/Not Resolved]
  - Balance disorder [Not Recovered/Not Resolved]
  - Thyroid cancer [Unknown]
  - Sluggishness [Unknown]

NARRATIVE: CASE EVENT DATE: 2016
